FAERS Safety Report 21711707 (Version 2)
Quarter: 2022Q4

REPORT INFORMATION
  Report Type: Report from Study
  Country: US (occurrence: US)
  Receive Date: 20221212
  Receipt Date: 20221213
  Transmission Date: 20230113
  Serious: No
  Sender: FDA-Public Use
  Company Number: US-ABBVIE-4223982

PATIENT
  Sex: Female

DRUGS (2)
  1. HUMIRA [Suspect]
     Active Substance: ADALIMUMAB
     Indication: Uveitis
     Route: 058
  2. HUMIRA [Suspect]
     Active Substance: ADALIMUMAB
     Indication: Ankylosing spondylitis

REACTIONS (6)
  - Vaginal odour [Not Recovered/Not Resolved]
  - Drug ineffective [Unknown]
  - Dry mouth [Unknown]
  - Arthritis [Not Recovered/Not Resolved]
  - Spinal pain [Not Recovered/Not Resolved]
  - Dry eye [Unknown]

NARRATIVE: CASE EVENT DATE: 20220101
